FAERS Safety Report 10460876 (Version 1)
Quarter: 2014Q3

REPORT INFORMATION
  Report Type: Spontaneous
  Country: US (occurrence: None)
  Receive Date: 20140917
  Receipt Date: 20140917
  Transmission Date: 20150326
  Serious: Yes (Death, Hospitalization)
  Sender: FDA-Public Use
  Company Number: None

PATIENT
  Age: 77 Year
  Sex: Male
  Weight: 96.3 kg

DRUGS (2)
  1. TAXOL [Suspect]
     Active Substance: PACLITAXEL
     Dates: end: 20140609
  2. CARBOPLATIN. [Suspect]
     Active Substance: CARBOPLATIN
     Dates: end: 20140609

REACTIONS (13)
  - Radiation pericarditis [None]
  - Pulmonary embolism [None]
  - Pneumonia [None]
  - Abdominal pain upper [None]
  - Hypoxia [None]
  - Pericardial effusion [None]
  - Atrial fibrillation [None]
  - Chills [None]
  - Atelectasis [None]
  - Hypotension [None]
  - Myocardial infarction [None]
  - Aspiration [None]
  - Pleural effusion [None]

NARRATIVE: CASE EVENT DATE: 20140906
